FAERS Safety Report 9466797 (Version 2)
Quarter: 2013Q3

REPORT INFORMATION
  Report Type: Spontaneous
  Country: US (occurrence: None)
  Receive Date: 20130816
  Receipt Date: 20130822
  Transmission Date: 20140515
  Serious: Yes (Death)
  Sender: FDA-Public Use
  Company Number: UTC-036488

PATIENT
  Age: 82 Year
  Sex: Female
  Weight: 67.7 kg

DRUGS (2)
  1. TYVASO [Suspect]
     Indication: PULMONARY ARTERIAL HYPERTENSION
     Dosage: 54 MCG 4 IN 1 D
     Route: 055
     Dates: start: 20111119
  2. LETAIRIS (AMBRISENTAN) (UNKNOWN) [Concomitant]

REACTIONS (2)
  - Hospice care [None]
  - Myocardial infarction [None]
